FAERS Safety Report 4519702-1 (Version None)
Quarter: 2004Q4

REPORT INFORMATION
  Report Type: 
  Country: None (occurrence: None)
  Receive Date: 20041206
  Receipt Date: 20040824
  Transmission Date: 20050328
  Serious: Yes (Hospitalization, Other)
  Sender: FDA-Public Use
  Company Number: PHEH2004US09162

PATIENT
  Age: 74 Year
  Sex: Male

DRUGS (8)
  1. CARDIZEM [Concomitant]
     Indication: ATRIAL FIBRILLATION
     Dosage: 180 MG, BID
     Route: 048
     Dates: start: 20040801
  2. XANAX [Suspect]
     Indication: ANXIETY
     Dosage: UNK, UNK
     Route: 048
     Dates: start: 20011101, end: 20040101
  3. COUMADIN [Suspect]
     Indication: ATRIAL FIBRILLATION
     Route: 048
     Dates: start: 20040401
  4. GLEEVEC [Suspect]
     Indication: CHRONIC MYELOID LEUKAEMIA
     Dosage: 400 MG, QD
     Route: 048
     Dates: start: 20010901
  5. LEVOXYL [Concomitant]
     Indication: THYROID GLAND CANCER
     Dosage: 0.15 MG, QD
     Dates: start: 20010801
  6. CENTRUM [Concomitant]
     Dosage: 1, QD
  7. PREVACID [Concomitant]
     Route: 048
     Dates: start: 20010801
  8. CLARINEX /USA/ [Concomitant]
     Dosage: 5 MG, UNK
     Route: 048
     Dates: start: 20030701

REACTIONS (12)
  - ANXIETY [None]
  - ARTHRALGIA [None]
  - ASTHENIA [None]
  - ATRIAL FIBRILLATION [None]
  - BONE PAIN [None]
  - DEPENDENCE [None]
  - DIZZINESS [None]
  - DRUG DEPENDENCE [None]
  - FATIGUE [None]
  - MUSCLE CRAMP [None]
  - NIGHT SWEATS [None]
  - SKIN BURNING SENSATION [None]
